FAERS Safety Report 4321901-9 (Version None)
Quarter: 2004Q1

REPORT INFORMATION
  Report Type: 
  Country: None (occurrence: None)
  Receive Date: 20040318
  Receipt Date: 20040309
  Transmission Date: 20041129
  Serious: Yes (Life-Threatening)
  Sender: FDA-Public Use
  Company Number: 200410147BCA

PATIENT
  Age: 9 Year
  Sex: Male

DRUGS (2)
  1. FLEBOGAMMA [Suspect]
     Dosage: 15 ML, TOTAL DAILY, INTRAVENOUS
     Route: 042
     Dates: start: 20040227, end: 20040227
  2. FLEBOGAMMA [Suspect]
     Dosage: ONCE, INTRAVENOUS
     Route: 042
     Dates: start: 20040227, end: 20040227

REACTIONS (3)
  - ANAPHYLACTOID REACTION [None]
  - DRUG INEFFECTIVE [None]
  - RESPIRATORY DISTRESS [None]
